FAERS Safety Report 8778176 (Version 1)
Quarter: 2012Q4

REPORT INFORMATION
  Report Type: 
  Country: US (occurrence: US)
  Receive Date: 20120911
  Receipt Date: 20120911
  Transmission Date: 20130627
  Serious: Yes (Other)
  Sender: FDA-Public Use
  Company Number: US-CELGENEUS-163-21880-12031287

PATIENT
  Sex: Male
  Weight: 89.2 kg

DRUGS (2)
  1. REVLIMID [Suspect]
     Indication: MULTIPLE MYELOMA
     Dosage: 25 Milligram
     Route: 048
     Dates: start: 20081008
  2. REVLIMID [Suspect]
     Dosage: 10 Milligram
     Route: 048
     Dates: start: 201111

REACTIONS (7)
  - Adverse drug reaction [Unknown]
  - Suicidal ideation [Unknown]
  - Anxiety [Unknown]
  - Asthenia [Unknown]
  - Fatigue [Unknown]
  - Tremor [Unknown]
  - Depression [Unknown]
